FAERS Safety Report 20221353 (Version 1)
Quarter: 2021Q4

REPORT INFORMATION
  Report Type: Spontaneous
  Country: JP (occurrence: JP)
  Receive Date: 20211223
  Receipt Date: 20211223
  Transmission Date: 20220303
  Serious: Yes (Death, Life-Threatening, Other)
  Sender: FDA-Public Use
  Company Number: JP-Merck Healthcare KGaA-9287515

PATIENT
  Sex: Male

DRUGS (2)
  1. ERBITUX [Suspect]
     Active Substance: CETUXIMAB
     Indication: Hypopharyngeal cancer
     Dosage: UNK, WEEKLY (1/W)
     Route: 041
  2. PACLITAXEL [Suspect]
     Active Substance: PACLITAXEL
     Indication: Hypopharyngeal cancer
     Dosage: -1 UNK, WEEKLY (1/W)
     Route: 041

REACTIONS (10)
  - Illness [Fatal]
  - White blood cell count increased [Unknown]
  - Myocardial infarction [Unknown]
  - Cardiac dysfunction [Unknown]
  - Pleural effusion [Unknown]
  - Condition aggravated [Unknown]
  - Blood creatine phosphokinase increased [Unknown]
  - Nausea [Fatal]
  - Liver function test increased [Unknown]
  - Off label use [Unknown]

NARRATIVE: CASE EVENT DATE: 20210225
